FAERS Safety Report 9008824 (Version 1)
Quarter: 2013Q1

REPORT INFORMATION
  Report Type: Spontaneous
  Country: US (occurrence: US)
  Receive Date: 20130111
  Receipt Date: 20130111
  Transmission Date: 20140127
  Serious: Yes (Other)
  Sender: FDA-Public Use
  Company Number: US-009507513-1301USA003644

PATIENT
  Age: 5 Year
  Sex: Male

DRUGS (1)
  1. SINGULAIR [Suspect]
     Indication: NASAL CONGESTION
     Dosage: 1 CHEW TABLET
     Route: 048

REACTIONS (3)
  - Formication [Unknown]
  - Drug withdrawal syndrome [Unknown]
  - Drug dose omission [Unknown]
